FAERS Safety Report 9537777 (Version 3)
Quarter: 2013Q4

REPORT INFORMATION
  Report Type: Spontaneous
  Country: JP (occurrence: JP)
  Receive Date: 20130919
  Receipt Date: 20131007
  Transmission Date: 20140711
  Serious: Yes (Death, Other)
  Sender: FDA-Public Use
  Company Number: JP-OTSUKA-JP-2013-13614

PATIENT
  Age: 78 Year
  Sex: Male
  Weight: 73 kg

DRUGS (21)
  1. SAMSCA [Suspect]
     Indication: POLYURIA
     Dosage: 7.5 MG MILLIGRAM(S), QD
     Route: 048
     Dates: start: 20130827, end: 20130828
  2. SAMSCA [Suspect]
     Indication: OEDEMA
     Dosage: 15 MG MILLIGRAM(S), QD
     Route: 048
     Dates: start: 20130829, end: 20130902
  3. HANP [Concomitant]
     Indication: POLYURIA
     Dosage: 0.025 UG/KG/MIN, DAILY DOSE
     Route: 041
     Dates: start: 20130822, end: 20130827
  4. HANP [Concomitant]
     Indication: NEPHROPROTECTIVE THERAPY
     Dosage: 0.050 UG/KG/MIN, DAILY DOSE
     Route: 041
     Dates: start: 20130827, end: 20130830
  5. HANP [Concomitant]
     Dosage: 0.025 UG/KG/MIN, DAILY DOSE
     Route: 041
     Dates: start: 20130830, end: 20130831
  6. BUFFERIN [Concomitant]
     Dosage: 81 MG MILLIGRAM(S), QAM
     Route: 048
  7. NATRIX [Concomitant]
     Dosage: 1 MG MILLIGRAM(S), QAM
     Route: 048
     Dates: end: 20130822
  8. BAYASPIRIN [Concomitant]
     Indication: STENT PLACEMENT
     Dosage: 100 MG MILLIGRAM(S), QD
     Route: 048
     Dates: start: 20130822
  9. BAYASPIRIN [Concomitant]
     Indication: MYOCARDIAL ISCHAEMIA
  10. MYSLEE [Concomitant]
     Indication: INSOMNIA
     Dosage: 5 MG MILLIGRAM(S), QD
     Route: 048
     Dates: start: 20130830, end: 20130903
  11. ALDACTONE A [Concomitant]
     Indication: CARDIAC FAILURE
     Dosage: 25 MG MILLIGRAM(S), QAM
     Route: 048
     Dates: end: 20130902
  12. LENIMEC [Concomitant]
     Indication: HYPERTENSION
     Dosage: 5 MG MILLIGRAM(S), QAM
     Route: 048
     Dates: end: 20130902
  13. ARTIST [Concomitant]
     Indication: CARDIAC FAILURE
     Dosage: 10 MG MILLIGRAM(S), QD
     Route: 048
     Dates: end: 20130902
  14. ARTIST [Concomitant]
     Dosage: 2.5 MG MILLIGRAM(S), QAM
     Route: 048
     Dates: start: 20130903
  15. LANSOPRAZOLE [Concomitant]
     Indication: GASTRITIS
     Dosage: 15 MG MILLIGRAM(S), QAM
     Route: 048
     Dates: end: 20130902
  16. DIART [Concomitant]
     Indication: CARDIAC FAILURE
     Dosage: 60 MG MILLIGRAM(S), QAM
     Route: 048
     Dates: end: 20130902
  17. RENIVACE [Concomitant]
     Dosage: UNK
     Route: 048
     Dates: end: 20130903
  18. KREMEZIN [Concomitant]
     Dosage: 2 G GRAM(S), TID
     Route: 048
     Dates: end: 20130903
  19. ACARDI [Concomitant]
     Dosage: 1.25 MG MILLIGRAM(S), BID
     Route: 048
     Dates: end: 20130903
  20. SHAKUYAKUKANZOUTOU [Concomitant]
     Dosage: 2.5 G GRAM(S), BID
     Route: 048
     Dates: end: 20130903
  21. WAKADENIN [Concomitant]
     Dosage: 10 MG MILLIGRAM(S), TID
     Route: 048
     Dates: end: 20130903

REACTIONS (8)
  - Hepatic function abnormal [Fatal]
  - Hepatitis fulminant [Fatal]
  - Disseminated intravascular coagulation [Fatal]
  - Hepatic encephalopathy [Fatal]
  - Blood pressure decreased [Fatal]
  - Multi-organ failure [Fatal]
  - Renal impairment [Fatal]
  - Shock [Unknown]
